FAERS Safety Report 9504056 (Version 1)
Quarter: 2013Q3

REPORT INFORMATION
  Report Type: Spontaneous
  Country: US (occurrence: US)
  Receive Date: 20130906
  Receipt Date: 20130906
  Transmission Date: 20140515
  Serious: Yes (Hospitalization)
  Sender: FDA-Public Use
  Company Number: US-BAYER-2013-105140

PATIENT
  Age: 25 Year
  Sex: Female

DRUGS (21)
  1. YAZ [Suspect]
  2. YASMIN [Suspect]
  3. LEVBID [Concomitant]
     Dosage: UNK
     Dates: start: 20061107
  4. REGLAN [Concomitant]
     Dosage: UNK
     Dates: start: 20061107
  5. VICODIN [Concomitant]
     Dosage: UNK
     Dates: start: 20061107
  6. CARAFATE [Concomitant]
     Dosage: UNK
     Dates: start: 20061107
  7. SINGULAIR [Concomitant]
     Dosage: 10 MG, UNK
     Dates: start: 20061107
  8. ALLEGRA [Concomitant]
     Dosage: UNK
     Dates: start: 20061107
  9. NEXIUM [Concomitant]
     Dosage: UNK
     Dates: start: 20061107
  10. EFFEXOR [Concomitant]
     Dosage: UNK
     Dates: start: 20061107
  11. BUSPAR [Concomitant]
     Dosage: UNK
     Dates: start: 20061107
  12. ADVAIR DISKUS [Concomitant]
     Dosage: UNK
     Dates: start: 20061107
  13. MEDROL [Concomitant]
     Dosage: UNK
     Dates: start: 20061107
  14. CYCLOBENZAPRINE [Concomitant]
     Dosage: 10 MG, UNK
  15. METHYLPREDNISOLONE [Concomitant]
     Dosage: 4 MG, UNK
  16. SUCRALFATE [Concomitant]
     Dosage: 1 G, UNK
  17. PROPOXYPHENE NAPSYLATE W/ACETAMINOPHENE [Concomitant]
  18. HYOSCYAMINE [Concomitant]
     Dosage: 0.375 MG, UNK
  19. HYDROCODONE W/APAP [Concomitant]
     Dosage: 7.5/500 MG
  20. BUSPIRONE [Concomitant]
     Dosage: 15 MG, UNK
  21. PROMETHAZINE [Concomitant]
     Dosage: 25 MG, UNK

REACTIONS (3)
  - Deep vein thrombosis [None]
  - Cholecystitis chronic [None]
  - Pancreatitis [None]
